FAERS Safety Report 24543689 (Version 2)
Quarter: 2025Q2

REPORT INFORMATION
  Report Type: Spontaneous
  Country: US (occurrence: US)
  Receive Date: 20241024
  Receipt Date: 20250404
  Transmission Date: 20250717
  Serious: No
  Sender: ALEXION PHARMACEUTICALS
  Company Number: US-AstraZeneca-CH-00728083AP

PATIENT
  Age: 83 Year

DRUGS (2)
  1. BREZTRI [Suspect]
     Active Substance: BUDESONIDE\FORMOTEROL\GLYCOPYRROLATE
  2. SYMBICORT [Suspect]
     Active Substance: BUDESONIDE\FORMOTEROL FUMARATE DIHYDRATE

REACTIONS (12)
  - Therapy change [Unknown]
  - Device connection issue [Unknown]
  - Therapeutic product effect increased [Unknown]
  - Intentional dose omission [Unknown]
  - Ear discomfort [Unknown]
  - Device use confusion [Unknown]
  - Device use issue [Unknown]
  - Device use issue [Unknown]
  - Arthritis [Unknown]
  - Device use issue [Unknown]
  - Device use issue [Unknown]
  - Device use issue [Unknown]
